FAERS Safety Report 8773818 (Version 1)
Quarter: 2012Q4

REPORT INFORMATION
  Report Type: 
  Country: JP (occurrence: JP)
  Receive Date: 20120907
  Receipt Date: 20120907
  Transmission Date: 20130627
  Serious: Yes (Other)
  Sender: FDA-Public Use
  Company Number: JP-BRISTOL-MYERS SQUIBB COMPANY-16908741

PATIENT
  Age: 7 None
  Sex: Male

DRUGS (1)
  1. WARFARIN SODIUM [Suspect]
     Dosage: 1 Df= 2 to 3mg.
     Dates: start: 201109

REACTIONS (1)
  - Eosinophilia [Recovered/Resolved]
